FAERS Safety Report 8095163-3 (Version None)
Quarter: 2012Q1

REPORT INFORMATION
  Report Type: 
  Country: None (occurrence: None)
  Receive Date: 20120129
  Receipt Date: 20111230
  Transmission Date: 20120608
  Serious: No
  Sender: FDA-Public Use
  Company Number: US-ABBOTT-12P-163-0888562-00

PATIENT
  Age: 59 Year
  Sex: Female

DRUGS (9)
  1. PROVENTIL [Concomitant]
     Indication: ASTHMA
  2. HYDROCODONE BITARTRATE [Concomitant]
     Indication: PAIN
  3. ADVAIR DISKUS 100/50 [Concomitant]
     Indication: ASTHMA
     Dosage: 100/50 INH
     Route: 055
  4. PRAVASTATIN [Concomitant]
     Indication: BLOOD CHOLESTEROL
  5. LOSARTAN POTASSIUM AND HYDROCHLOROTHIAZIDE [Concomitant]
     Indication: HYPERTENSION
  6. NAPROXEN [Concomitant]
     Indication: BACK PAIN
  7. SINGULAIR [Concomitant]
     Indication: ASTHMA
     Dosage: AT BEDTIME
  8. HUMIRA [Suspect]
     Indication: PSORIASIS
     Dates: start: 20111201, end: 20111216
  9. RANITIDINE [Concomitant]
     Indication: GASTRIC DISORDER

REACTIONS (4)
  - ARTHRALGIA [None]
  - PYREXIA [None]
  - SINUSITIS [None]
  - HEADACHE [None]
